FAERS Safety Report 8887445 (Version 1)
Quarter: 2012Q4

REPORT INFORMATION
  Report Type: Spontaneous
  Country: US (occurrence: None)
  Receive Date: 20121101
  Receipt Date: 20121101
  Transmission Date: 20130627
  Serious: Yes (Hospitalization)
  Sender: FDA-Public Use
  Company Number: None

PATIENT
  Age: 60 Year
  Sex: Male
  Weight: 104.33 kg

DRUGS (1)
  1. AVELOX [Suspect]
     Dates: start: 20120713, end: 20120725

REACTIONS (3)
  - Chromaturia [None]
  - Ocular icterus [None]
  - Blood bilirubin increased [None]
